FAERS Safety Report 10274854 (Version 2)
Quarter: 2015Q3

REPORT INFORMATION
  Report Type: Spontaneous
  Country: US (occurrence: US)
  Receive Date: 20140702
  Receipt Date: 20150817
  Transmission Date: 20151125
  Serious: No
  Sender: FDA-Public Use
  Company Number: US-GILEAD-2014-0107336

PATIENT
  Age: 50 Year
  Sex: Male

DRUGS (10)
  1. XIFAXAN [Concomitant]
     Active Substance: RIFAXIMIN
  2. FUROSEMIDE. [Concomitant]
     Active Substance: FUROSEMIDE
  3. SERTRALINE [Concomitant]
     Active Substance: SERTRALINE HYDROCHLORIDE
  4. AMILORIDE [Concomitant]
     Active Substance: AMILORIDE
  5. LETAIRIS [Suspect]
     Active Substance: AMBRISENTAN
     Indication: PULMONARY ARTERIAL HYPERTENSION
     Dosage: 5 MG, QD
     Route: 065
     Dates: start: 20130831
  6. FLAXSEED [Concomitant]
     Active Substance: FLAX SEED
  7. VITAMIN D3 [Concomitant]
     Active Substance: CHOLECALCIFEROL
  8. CIPROFLOXACIN. [Concomitant]
     Active Substance: CIPROFLOXACIN
  9. VITAMIN C [Concomitant]
     Active Substance: ASCORBIC ACID
  10. NADOLOL. [Concomitant]
     Active Substance: NADOLOL

REACTIONS (3)
  - Endoscopy [Recovered/Resolved]
  - Catheterisation cardiac [Recovered/Resolved]
  - Throat irritation [Unknown]

NARRATIVE: CASE EVENT DATE: 201405
